FAERS Safety Report 6881748-6 (Version None)
Quarter: 2010Q3

REPORT INFORMATION
  Report Type: 
  Country: None (occurrence: None)
  Receive Date: 20100729
  Receipt Date: 20100719
  Transmission Date: 20110219
  Serious: No
  Sender: FDA-Public Use
  Company Number: 2009BI042176

PATIENT
  Age: 58 Year
  Sex: Female

DRUGS (1)
  1. TYSABRI [Suspect]
     Indication: MULTIPLE SCLEROSIS
     Route: 042
     Dates: start: 20090930, end: 20091125

REACTIONS (4)
  - ADVERSE DRUG REACTION [None]
  - CHILLS [None]
  - DRUG SPECIFIC ANTIBODY PRESENT [None]
  - TREMOR [None]
